FAERS Safety Report 26091967 (Version 1)
Quarter: 2025Q4

REPORT INFORMATION
  Report Type: Spontaneous
  Country: CN (occurrence: CN)
  Receive Date: 20251126
  Receipt Date: 20251126
  Transmission Date: 20260117
  Serious: Yes (Death, Life-Threatening)
  Sender: ACCORD
  Company Number: CN-MLMSERVICE-20251110-PI708671-00140-1

PATIENT
  Age: 53 Year
  Sex: Female

DRUGS (3)
  1. ETOPOSIDE [Suspect]
     Active Substance: ETOPOSIDE
     Indication: Philadelphia positive chronic myeloid leukaemia
     Dosage: ETOPOSIDE 0.1 DAYS 1-5
  2. CYTARABINE [Suspect]
     Active Substance: CYTARABINE
     Indication: Philadelphia positive chronic myeloid leukaemia
     Dosage: CYTARABINE 200 MG DAYS 1-7
  3. OMACETAXINE MEPESUCCINATE [Suspect]
     Active Substance: OMACETAXINE MEPESUCCINATE
     Indication: Philadelphia positive chronic myeloid leukaemia
     Dosage: HOMOHARRINGTONINE 4 MG DAYS 1-7

REACTIONS (2)
  - Myelosuppression [Fatal]
  - Cardiac arrest [Fatal]
